FAERS Safety Report 9067073 (Version 1)
Quarter: 2013Q1

REPORT INFORMATION
  Report Type: Report from Study
  Country: US (occurrence: US)
  Receive Date: 20130201
  Receipt Date: 20130201
  Transmission Date: 20140127
  Serious: No
  Sender: FDA-Public Use
  Company Number: US-ABBOTT-12P-163-1028710-00

PATIENT
  Age: 58 None
  Sex: Female
  Weight: 83.54 kg

DRUGS (8)
  1. HUMIRA [Suspect]
     Indication: SARCOIDOSIS
     Dates: start: 201211
  2. PREDNISONE [Concomitant]
     Indication: SARCOIDOSIS
  3. NEXIUM [Concomitant]
     Indication: GASTROOESOPHAGEAL REFLUX DISEASE
  4. DIOVAN [Concomitant]
     Indication: HYPERTENSION
  5. JANUVIA [Concomitant]
     Indication: GLUCOSE TOLERANCE IMPAIRED
  6. LORTAB [Concomitant]
     Indication: PAIN
  7. ALPRAZOLAM [Concomitant]
     Indication: INSOMNIA
  8. TRIAZOLAM [Concomitant]
     Indication: INSOMNIA

REACTIONS (3)
  - Off label use [Not Recovered/Not Resolved]
  - Fatigue [Not Recovered/Not Resolved]
  - Nasopharyngitis [Not Recovered/Not Resolved]
